FAERS Safety Report 8652368 (Version 4)
Quarter: 2013Q4

REPORT INFORMATION
  Report Type: Report from Study
  Country: BR (occurrence: BR)
  Receive Date: 20120706
  Receipt Date: 20131009
  Transmission Date: 20140711
  Serious: Yes (Hospitalization, Other)
  Sender: FDA-Public Use
  Company Number: BR-ROCHE-1084214

PATIENT
  Age: 58 Year
  Sex: Female
  Weight: 71 kg

DRUGS (8)
  1. PEGASYS [Suspect]
     Indication: HEPATITIS C
     Route: 065
     Dates: start: 20120507, end: 20130429
  2. RIBAVIRIN [Suspect]
     Indication: HEPATITIS C
     Route: 065
     Dates: start: 20120507, end: 20130429
  3. SIMVASTATINE [Concomitant]
     Indication: BLOOD CHOLESTEROL
  4. OMEPRAZOLE [Concomitant]
     Route: 065
  5. LOSARTAN [Concomitant]
     Indication: HYPERTENSION
     Route: 065
  6. ALENIA (BRAZIL) [Concomitant]
     Indication: ASTHMA
     Dosage: DOSE: 12/400
     Route: 065
  7. PONDERA [Concomitant]
     Indication: DEPRESSION
     Route: 065
  8. ACETYLSALICYLIC ACID [Concomitant]
     Route: 065

REACTIONS (19)
  - Dyspnoea [Unknown]
  - Chest pain [Unknown]
  - Blood pressure increased [Unknown]
  - Cataract [Recovered/Resolved with Sequelae]
  - Syncope [Not Recovered/Not Resolved]
  - Fatigue [Not Recovered/Not Resolved]
  - Mucosal dryness [Not Recovered/Not Resolved]
  - Weight decreased [Recovered/Resolved]
  - Anaemia [Recovered/Resolved]
  - Visual impairment [Not Recovered/Not Resolved]
  - Cold sweat [Not Recovered/Not Resolved]
  - Haematochezia [Not Recovered/Not Resolved]
  - Spinal disorder [Unknown]
  - Insomnia [Recovered/Resolved]
  - Anxiety [Recovered/Resolved]
  - Osteopenia [Not Recovered/Not Resolved]
  - Osteoarthritis [Unknown]
  - Hypertension [Recovered/Resolved]
  - Blood cholesterol increased [Recovered/Resolved]
